FAERS Safety Report 14920352 (Version 1)
Quarter: 2018Q2

REPORT INFORMATION
  Report Type: Spontaneous
  Country: US (occurrence: US)
  Receive Date: 20180502
  Receipt Date: 20180502
  Transmission Date: 20180711
  Serious: Yes (Other)
  Sender: FDA-Public Use
  Company Number: None

PATIENT
  Age: 50 Year
  Sex: Male

DRUGS (4)
  1. ZYRTEC [Concomitant]
     Active Substance: CETIRIZINE HYDROCHLORIDE
     Dates: start: 20180501
  2. MULTIPLE VITAMIN [Concomitant]
     Active Substance: VITAMINS
     Dates: start: 20180501
  3. OCREVUS [Suspect]
     Active Substance: OCRELIZUMAB
  4. AMPYRA [Concomitant]
     Active Substance: DALFAMPRIDINE
     Dates: start: 20180123

REACTIONS (3)
  - Asthenia [None]
  - Fatigue [None]
  - Peroneal nerve palsy [None]
